FAERS Safety Report 6370061-1 (Version None)
Quarter: 2009Q3

REPORT INFORMATION
  Report Type: 
  Country: None (occurrence: None)
  Receive Date: 20090923
  Receipt Date: 20071018
  Transmission Date: 20100115
  Serious: No
  Sender: FDA-Public Use
  Company Number: US-ASTRAZENECA-2006UW21024

PATIENT
  Age: 38 Year
  Sex: Female
  Weight: 81.6 kg

DRUGS (13)
  1. SEROQUEL [Suspect]
     Indication: DEPRESSION
     Route: 048
     Dates: start: 20010101, end: 20070101
  2. SEROQUEL [Suspect]
     Indication: SLEEP DISORDER
     Route: 048
     Dates: start: 20010101, end: 20070101
  3. SEROQUEL [Suspect]
     Indication: ANXIETY
     Route: 048
     Dates: start: 20010101, end: 20070101
  4. DELESTROGEN [Concomitant]
  5. LORTAB [Concomitant]
  6. XANAX [Concomitant]
  7. BYETTA [Concomitant]
  8. INSULIN INJECTION [Concomitant]
  9. DECADRON [Concomitant]
  10. BACTROBAN [Concomitant]
  11. LOTRISONE [Concomitant]
  12. DIFLUCAN [Concomitant]
  13. ESTROGEN [Concomitant]

REACTIONS (15)
  - ARTHROPOD BITE [None]
  - BACK PAIN [None]
  - BRONCHITIS [None]
  - CHEST DISCOMFORT [None]
  - CONTUSION [None]
  - COUGH [None]
  - DIABETES MELLITUS [None]
  - FATIGUE [None]
  - INFECTED BITES [None]
  - INFLUENZA [None]
  - MUSCLE STRAIN [None]
  - MUSCULOSKELETAL PAIN [None]
  - NAUSEA [None]
  - TYPE 2 DIABETES MELLITUS [None]
  - VOMITING [None]
